FAERS Safety Report 4878653-3 (Version None)
Quarter: 2006Q1

REPORT INFORMATION
  Report Type: 
  Country: None (occurrence: None)
  Receive Date: 20060110
  Receipt Date: 20060103
  Transmission Date: 20060701
  Serious: Yes (Death, Hospitalization)
  Sender: FDA-Public Use
  Company Number: USA-2006-0022086

PATIENT
  Age: 51 Year
  Sex: Male
  Weight: 70.3 kg

DRUGS (5)
  1. OXYCODONE HCL [Suspect]
  2. MORPHINE SULFATE [Suspect]
  3. ACETAMINOPHEN [Suspect]
  4. MIDAZOLAM() [Suspect]
  5. AMITRIPTYLINE HCL [Suspect]

REACTIONS (6)
  - DRUG TOXICITY [None]
  - HYPERTENSIVE HEART DISEASE [None]
  - MENTAL STATUS CHANGES [None]
  - MULTIPLE DRUG OVERDOSE ACCIDENTAL [None]
  - PANCREATITIS ACUTE [None]
  - POLYSUBSTANCE ABUSE [None]
